FAERS Safety Report 6369279-3 (Version None)
Quarter: 2009Q3

REPORT INFORMATION
  Report Type: 
  Country: None (occurrence: None)
  Receive Date: 20090922
  Receipt Date: 20090918
  Transmission Date: 20100115
  Serious: Yes (Other)
  Sender: FDA-Public Use
  Company Number: US-AMGEN-US365367

PATIENT
  Sex: Female

DRUGS (4)
  1. NPLATE [Suspect]
     Indication: IDIOPATHIC THROMBOCYTOPENIC PURPURA
     Route: 058
     Dates: start: 20090101
  2. PREDNISONE [Concomitant]
     Route: 048
  3. UNSPECIFIED ANTIHYPERTENSIVE AGENT [Concomitant]
     Route: 065
  4. UNSPECIFIED THYROID MEDICATION [Concomitant]
     Route: 065

REACTIONS (2)
  - HAEMOGLOBIN DECREASED [None]
  - THERAPEUTIC RESPONSE DECREASED [None]
